FAERS Safety Report 8916300 (Version 2)
Quarter: 2012Q4

REPORT INFORMATION
  Report Type: 
  Country: US (occurrence: US)
  Receive Date: 20121120
  Receipt Date: 20121214
  Transmission Date: 20130627
  Serious: Yes (Disabling, Other)
  Sender: FDA-Public Use
  Company Number: US-009507513-1211USA007925

PATIENT

DRUGS (4)
  1. FOSAMAX [Suspect]
     Dosage: UNK
     Route: 048
     Dates: start: 1997, end: 2008
  2. FOSAMAX [Suspect]
     Dosage: UNK
     Dates: start: 1997, end: 2008
  3. BONIVA [Suspect]
     Dosage: UNK
     Dates: start: 1997, end: 2008
  4. IBANDRONATE SODIUM [Suspect]
     Dosage: UNK
     Dates: start: 1997, end: 2008

REACTIONS (1)
  - Femur fracture [Unknown]
